FAERS Safety Report 4294576-5 (Version None)
Quarter: 2004Q1

REPORT INFORMATION
  Report Type: 
  Country: None (occurrence: None)
  Receive Date: 20040211
  Receipt Date: 20040203
  Transmission Date: 20041129
  Serious: Yes (Life-Threatening)
  Sender: FDA-Public Use
  Company Number: 2004US000143

PATIENT
  Age: 9 Year
  Sex: Male

DRUGS (5)
  1. AMBISOME [Suspect]
     Indication: ORGAN TRANSPLANT
     Dosage: 5 MG/KG, UID/QD; INTRAVENOUS (SEE IMAGE)
     Route: 042
     Dates: start: 20031225, end: 20040111
  2. AMBISOME [Suspect]
     Indication: ORGAN TRANSPLANT
     Dosage: 5 MG/KG, UID/QD; INTRAVENOUS (SEE IMAGE)
     Route: 042
     Dates: start: 20031225, end: 20040113
  3. AMBISOME [Suspect]
     Indication: ORGAN TRANSPLANT
     Dosage: 5 MG/KG, UID/QD; INTRAVENOUS (SEE IMAGE)
     Route: 042
     Dates: start: 20040113, end: 20040113
  4. MEROPENEM [Concomitant]
  5. TEICOPLANIN [Concomitant]

REACTIONS (4)
  - CEREBRAL HAEMORRHAGE [None]
  - HYPERTENSION [None]
  - INTRAVASCULAR HAEMOLYSIS [None]
  - THROMBOCYTOPENIA [None]
